FAERS Safety Report 25308735 (Version 1)
Quarter: 2025Q2

REPORT INFORMATION
  Report Type: Spontaneous
  Country: US (occurrence: US)
  Receive Date: 20250513
  Receipt Date: 20250513
  Transmission Date: 20250717
  Serious: No
  Sender: SANOFI AVENTIS
  Company Number: US-SA-2025SA135396

PATIENT
  Sex: Male
  Weight: 129.27 kg

DRUGS (10)
  1. DUPIXENT [Suspect]
     Active Substance: DUPILUMAB
     Dosage: 300 MG ONCE A WEEK
     Route: 058
  2. SERTRALINE [Concomitant]
     Active Substance: SERTRALINE HYDROCHLORIDE
  3. OXYCODONE [Concomitant]
     Active Substance: OXYCODONE
  4. CELECOXIB [Concomitant]
     Active Substance: CELECOXIB
  5. ASPIRIN [Concomitant]
     Active Substance: ASPIRIN
  6. OMEPRAZOLE [Concomitant]
     Active Substance: OMEPRAZOLE
  7. CEFADROXIL [Concomitant]
     Active Substance: CEFADROXIL
  8. INDOMETHACIN [Concomitant]
     Active Substance: INDOMETHACIN
  9. COLCHICINE [Concomitant]
     Active Substance: COLCHICINE
  10. ALLOPURINOL [Concomitant]
     Active Substance: ALLOPURINOL

REACTIONS (2)
  - Fracture [Recovering/Resolving]
  - COVID-19 [Unknown]
